FAERS Safety Report 5258411-0 (Version None)
Quarter: 2007Q1

REPORT INFORMATION
  Report Type: 
  Country: None (occurrence: None)
  Receive Date: 20070306
  Receipt Date: 20070306
  Transmission Date: 20070707
  Serious: Yes (Other)
  Sender: FDA-Public Use
  Company Number: None

PATIENT
  Sex: Female
  Weight: 54.4316 kg

DRUGS (1)
  1. TRICOR [Suspect]
     Dosage: 48 MG 1X DAILY
     Dates: start: 20060223, end: 20060401

REACTIONS (2)
  - BONE PAIN [None]
  - NEURALGIA [None]
